FAERS Safety Report 23897884 (Version 1)
Quarter: 2024Q2

REPORT INFORMATION
  Report Type: Spontaneous
  Country: US (occurrence: US)
  Receive Date: 20240524
  Receipt Date: 20240524
  Transmission Date: 20240716
  Serious: Yes (Hospitalization)
  Sender: FDA-Public Use
  Company Number: US-ELI_LILLY_AND_COMPANY-US202405008915

PATIENT
  Age: 80 Year
  Sex: Female

DRUGS (1)
  1. FORTEO [Suspect]
     Active Substance: TERIPARATIDE
     Indication: Osteoporosis
     Dosage: UNK UNK, UNKNOWN
     Route: 065
     Dates: start: 202301

REACTIONS (5)
  - Poisoning [Recovering/Resolving]
  - Animal bite [Recovering/Resolving]
  - Cellulitis staphylococcal [Recovering/Resolving]
  - Delusion [Recovering/Resolving]
  - Depressed level of consciousness [Recovering/Resolving]
